FAERS Safety Report 5146643-1 (Version None)
Quarter: 2006Q4

REPORT INFORMATION
  Report Type: 
  Country: None (occurrence: None)
  Receive Date: 20061109
  Receipt Date: 20061030
  Transmission Date: 20070319
  Serious: Yes (Death, Hospitalization)
  Sender: FDA-Public Use
  Company Number: SE-JNJFOC-20061100017

PATIENT
  Age: 80 Year
  Sex: Male

DRUGS (12)
  1. REMICADE [Suspect]
     Indication: CROHN'S DISEASE
     Route: 042
  2. METHOTREXATE [Concomitant]
     Indication: RHEUMATOID ARTHRITIS
     Route: 065
  3. LIPITOR [Concomitant]
     Route: 065
  4. ASACOL [Concomitant]
     Route: 065
  5. KLEXANE [Concomitant]
     Route: 065
  6. BETAPRED [Concomitant]
     Route: 065
  7. LANACRIST [Concomitant]
     Route: 065
  8. FLAGYL [Concomitant]
     Route: 065
  9. TROMBYL [Concomitant]
     Route: 065
  10. SOTALOL HYDROCHLORIDE [Concomitant]
     Route: 065
  11. PANTOLOC [Concomitant]
     Route: 065
  12. ZOPIKLON [Concomitant]
     Route: 065

REACTIONS (7)
  - BRONCHOPULMONARY ASPERGILLOSIS [None]
  - MULTI-ORGAN FAILURE [None]
  - PLATELET COUNT DECREASED [None]
  - PULMONARY OEDEMA [None]
  - SHOCK [None]
  - STAPHYLOCOCCAL ABSCESS [None]
  - WHITE BLOOD CELL COUNT DECREASED [None]
